FAERS Safety Report 5919820-7 (Version None)
Quarter: 2008Q4

REPORT INFORMATION
  Report Type: 
  Country: None (occurrence: None)
  Receive Date: 20081010
  Receipt Date: 20080929
  Transmission Date: 20090506
  Serious: Yes (Life-Threatening)
  Sender: FDA-Public Use
  Company Number: SPV1-2008-01992

PATIENT
  Age: 26 Year
  Sex: Male
  Weight: 68 kg

DRUGS (3)
  1. MEZAVANT XL (MESALAZINE, MESALAMINE) TABLET [Suspect]
     Indication: COLITIS ULCERATIVE
     Dosage: 2.4 G,
     Dates: start: 20080301
  2. PREDNISOLON /00016201/ (PREDNISOLONE) [Concomitant]
  3. RISEDRONATE SODIUM [Concomitant]

REACTIONS (2)
  - CHILLS [None]
  - PYREXIA [None]
